FAERS Safety Report 17516018 (Version 5)
Quarter: 2020Q2

REPORT INFORMATION
  Report Type: Report from Study
  Country: NL (occurrence: NL)
  Receive Date: 20200309
  Receipt Date: 20200429
  Transmission Date: 20200713
  Serious: Yes (Other)
  Sender: FDA-Public Use
  Company Number: NL-MYLANLABS-2020M1021418

PATIENT
  Age: 52 Year
  Sex: Female
  Weight: 68 kg

DRUGS (2)
  1. AMOXICILLIN W/CLAVULANIC ACID [Concomitant]
     Active Substance: AMOXICILLIN\CLAVULANIC ACID
     Dosage: 1 DOSAGE FORM, TID (3X PER DAY 1 TABLET, 1X PER DAY 1 SACHET)
     Route: 048
  2. GLATIRAMEERACETAAT MYLAN 40 MG/ML [Suspect]
     Active Substance: GLATIRAMER ACETATE
     Indication: MULTIPLE SCLEROSIS
     Dosage: 40 MILLIGRAM, 3XW
     Route: 058
     Dates: start: 20200214, end: 20200221

REACTIONS (12)
  - Therapy partial responder [Unknown]
  - Injection site abscess [Recovered/Resolved]
  - Injection site swelling [Unknown]
  - Device occlusion [Unknown]
  - Injection site warmth [Unknown]
  - Syncope [Recovered/Resolved]
  - Device defective [Unknown]
  - Injection site erythema [Unknown]
  - Pyrexia [Unknown]
  - Injection site pruritus [Unknown]
  - Malaise [Not Recovered/Not Resolved]
  - Product packaging issue [Unknown]

NARRATIVE: CASE EVENT DATE: 20200219
